FAERS Safety Report 7957766-3 (Version None)
Quarter: 2011Q4

REPORT INFORMATION
  Report Type: 
  Country: None (occurrence: None)
  Receive Date: 20111205
  Receipt Date: 20111201
  Transmission Date: 20120403
  Serious: Yes (Life-Threatening, Hospitalization, Other)
  Sender: FDA-Public Use
  Company Number: PHHY2011FR105511

PATIENT
  Sex: Female

DRUGS (8)
  1. LYRICA [Suspect]
     Dosage: UNK
     Dates: start: 20110701
  2. ARANESP [Suspect]
     Dosage: UNK
     Dates: start: 20090701
  3. CERTICAN [Suspect]
     Dosage: UNK
  4. CERTICAN [Suspect]
     Dosage: 3 MG, UNK
     Dates: start: 20110506
  5. PANTOPRAZOLE [Suspect]
  6. MYCOPHENOLATE MOFETIL (CELLCEPT) [Suspect]
     Dosage: 1.5 MG, UNK
     Dates: start: 20070101
  7. ESOMEPRAZOLE [Concomitant]
  8. ASPIRIN [Suspect]
     Dosage: UNK
     Dates: start: 20070101

REACTIONS (10)
  - COUGH [None]
  - PRODUCTIVE COUGH [None]
  - PYREXIA [None]
  - C-REACTIVE PROTEIN DECREASED [None]
  - VOMITING [None]
  - ORGANISING PNEUMONIA [None]
  - MALAISE [None]
  - DIARRHOEA [None]
  - LUNG DISORDER [None]
  - BACTERIAL INFECTION [None]
